FAERS Safety Report 16806225 (Version 1)
Quarter: 2019Q3

REPORT INFORMATION
  Report Type: Spontaneous
  Country: US (occurrence: US)
  Receive Date: 20190913
  Receipt Date: 20190913
  Transmission Date: 20191005
  Serious: No
  Sender: FDA-Public Use
  Company Number: US-BIOGEN-2019BI00785106

PATIENT
  Age: 55 Year
  Sex: Male

DRUGS (2)
  1. TYSABRI [Suspect]
     Active Substance: NATALIZUMAB
     Indication: MULTIPLE SCLEROSIS
     Route: 042
     Dates: start: 20070411, end: 20080324
  2. TYSABRI [Suspect]
     Active Substance: NATALIZUMAB
     Route: 065

REACTIONS (1)
  - Hypotonia [Not Recovered/Not Resolved]

NARRATIVE: CASE EVENT DATE: 20190909
